FAERS Safety Report 25771657 (Version 1)
Quarter: 2025Q3

REPORT INFORMATION
  Report Type: Spontaneous
  Country: US (occurrence: US)
  Receive Date: 20250908
  Receipt Date: 20250908
  Transmission Date: 20251021
  Serious: No
  Sender: DOMPE FARMACEUTICI
  Company Number: US-FARMAPROD-202505-1539

PATIENT
  Sex: Female

DRUGS (15)
  1. OXERVATE [Suspect]
     Active Substance: CENEGERMIN-BKBJ
     Indication: Neurotrophic keratopathy
     Route: 047
     Dates: start: 20250423
  2. COENZYME Q-10 [Concomitant]
  3. ALOE VERA LEAF [Concomitant]
     Active Substance: ALOE VERA LEAF
  4. BEET ROOT-TART CHERRY [Concomitant]
  5. ASPIRIN [Concomitant]
     Active Substance: ASPIRIN
  6. MAGNESIUM [Concomitant]
     Active Substance: MAGNESIUM
  7. PROBIOTICS NOS [Concomitant]
     Active Substance: PROBIOTICS NOS
  8. VITAMIN D3 [Concomitant]
     Active Substance: CHOLECALCIFEROL
  9. VALACYCLOVIR [Concomitant]
     Active Substance: VALACYCLOVIR HYDROCHLORIDE
  10. LOSARTAN POTASSIUM [Concomitant]
     Active Substance: LOSARTAN POTASSIUM
  11. FISH OIL [Concomitant]
     Active Substance: FISH OIL
  12. METFORMIN HYDROCHLORIDE [Concomitant]
     Active Substance: METFORMIN HYDROCHLORIDE
  13. REFRESH TEARS [Concomitant]
     Active Substance: CARBOXYMETHYLCELLULOSE SODIUM
  14. NEPAFENAC;PREDNISOLONE [Concomitant]
  15. ZINC [Concomitant]
     Active Substance: ZINC

REACTIONS (5)
  - Pyrexia [Unknown]
  - Body temperature decreased [Unknown]
  - Diarrhoea [Unknown]
  - Rhinorrhoea [Unknown]
  - Headache [Unknown]
